FAERS Safety Report 8009373-4 (Version None)
Quarter: 2011Q4

REPORT INFORMATION
  Report Type: 
  Country: None (occurrence: None)
  Receive Date: 20111227
  Receipt Date: 20111215
  Transmission Date: 20120403
  Serious: Yes (Death, Life-Threatening, Hospitalization, Other)
  Sender: FDA-Public Use
  Company Number: JP-SANOFI-AVENTIS-2011SA077754

PATIENT
  Age: 85 Year
  Sex: Female
  Weight: 41.8 kg

DRUGS (6)
  1. MICARDIS [Concomitant]
  2. CONIEL [Concomitant]
  3. AMLODIPINE [Concomitant]
  4. LANSOPRAZOLE [Concomitant]
  5. AMARYL [Suspect]
     Indication: DIABETES MELLITUS
     Dosage: DAILY DOSE: 1
     Route: 065
     Dates: start: 20060530, end: 20111118
  6. MEDROXYPROGESTERONE ACETATE [Concomitant]

REACTIONS (2)
  - STRESS CARDIOMYOPATHY [None]
  - HYPOGLYCAEMIA [None]
